FAERS Safety Report 5860646-0 (Version None)
Quarter: 2008Q3

REPORT INFORMATION
  Report Type: 
  Country: None (occurrence: None)
  Receive Date: 20080827
  Receipt Date: 20080122
  Transmission Date: 20090109
  Serious: No
  Sender: FDA-Public Use
  Company Number: US-ABBOTT-07P-163-0420569-00

PATIENT
  Sex: Female
  Weight: 70.824 kg

DRUGS (5)
  1. COATED PDS [Suspect]
     Indication: BLOOD CHOLESTEROL INCREASED
     Route: 048
     Dates: start: 20070901, end: 20071014
  2. BLOOD PRESSURE PILL [Concomitant]
     Indication: HYPERTENSION
     Route: 048
  3. THYROID PILL [Concomitant]
     Indication: THYROID DISORDER
     Route: 048
  4. ESTROGENS CONJUGATED [Concomitant]
     Indication: DRUG USE FOR UNKNOWN INDICATION
     Route: 048
  5. PRILOSEC OTC [Concomitant]
     Indication: GASTRIC DISORDER
     Route: 048

REACTIONS (2)
  - FLUSHING [None]
  - PRURITUS [None]
